FAERS Safety Report 13468693 (Version 9)
Quarter: 2017Q3

REPORT INFORMATION
  Report Type: Spontaneous
  Country: KR (occurrence: KR)
  Receive Date: 20170421
  Receipt Date: 20170804
  Transmission Date: 20171127
  Serious: Yes (Hospitalization, Other)
  Sender: FDA-Public Use
  Company Number: KR-009507513-1702KOR006138

PATIENT
  Age: 70 Year
  Sex: Female
  Weight: 61.5 kg

DRUGS (41)
  1. EMEND (FOSAPREPITANT DIMEGLUMINE) [Suspect]
     Active Substance: FOSAPREPITANT DIMEGLUMINE
     Dosage: 150 MG, ONCE
     Route: 042
     Dates: start: 20170502, end: 20170502
  2. LASTET [Concomitant]
     Active Substance: ETOPOSIDE
     Dosage: 65 MG, QD (CYCLE 3); STRENGTH: 100MG/5ML
     Route: 042
     Dates: start: 20170324, end: 20170327
  3. CISPLAN [Concomitant]
     Active Substance: CISPLATIN
     Indication: DIFFUSE LARGE B-CELL LYMPHOMA RECURRENT
     Dosage: 65 MG, ONCE, CYCLE 1; STRENGTH: 50MG/100ML
     Route: 042
     Dates: start: 20170210, end: 20170210
  4. METHYLPREDNISOLONE SODIUM SUCCINATE. [Concomitant]
     Active Substance: METHYLPREDNISOLONE SODIUM SUCCINATE
     Dosage: 500 MG, QD
     Route: 042
     Dates: start: 20170324, end: 20170328
  5. ULCERLMIN [Concomitant]
     Active Substance: SUCRALFATE
     Indication: GASTRIC ULCER
     Dosage: 15 ML, TID; STRENGTH: 1G/15ML
     Route: 048
     Dates: start: 20170209
  6. EMEND (FOSAPREPITANT DIMEGLUMINE) [Suspect]
     Active Substance: FOSAPREPITANT DIMEGLUMINE
     Dosage: 150 MG, ONCE
     Route: 042
     Dates: start: 20170303, end: 20170303
  7. LASTET [Concomitant]
     Active Substance: ETOPOSIDE
     Dosage: 63.2 MG, QD (CYCLE 5); STRENGTH: 100MG/5ML
     Route: 042
     Dates: start: 20170524, end: 20170527
  8. CISPLAN [Concomitant]
     Active Substance: CISPLATIN
     Dosage: 40 MG, ONCE, CYCLE 2; STRENGTH: 50MG/100ML
     Route: 042
     Dates: start: 20170303, end: 20170303
  9. ALOXI [Concomitant]
     Active Substance: PALONOSETRON HYDROCHLORIDE
     Dosage: 0.25 MG, ONCE
     Route: 042
     Dates: start: 20170524, end: 20170524
  10. CRAVIT [Concomitant]
     Active Substance: LEVOFLOXACIN
     Indication: INFECTION PROPHYLAXIS
     Dosage: 500 MG, QD
     Route: 048
     Dates: start: 20170210, end: 20170219
  11. LASTET [Concomitant]
     Active Substance: ETOPOSIDE
     Dosage: 64 MG, QD (CYCLE 4); STRENGTH: 100MG/5ML
     Route: 042
     Dates: start: 20170502, end: 20170505
  12. CISPLAN [Concomitant]
     Active Substance: CISPLATIN
     Dosage: 40 MG, QD CYCLE 4; STRENGTH: 50MG/100ML
     Route: 042
     Dates: start: 20170502, end: 20170505
  13. ALOXI [Concomitant]
     Active Substance: PALONOSETRON HYDROCHLORIDE
     Dosage: 0.25 MG, ONCE
     Route: 042
     Dates: start: 20170324, end: 20170324
  14. ALOXI [Concomitant]
     Active Substance: PALONOSETRON HYDROCHLORIDE
     Dosage: 0.25 MG, ONCE
     Route: 042
     Dates: start: 20170502, end: 20170502
  15. CRAVIT [Concomitant]
     Active Substance: LEVOFLOXACIN
     Dosage: 500 MG, TID
     Route: 048
     Dates: start: 20170524, end: 20170602
  16. SOMALGEN [Concomitant]
     Indication: PAIN
     Dosage: 370 MG, TID
     Route: 048
     Dates: start: 20170206
  17. CHINESE MUGWORT [Concomitant]
     Indication: PROPHYLAXIS
     Dosage: 90 MG, QD
     Route: 048
     Dates: start: 20170206
  18. MUCOSTA [Concomitant]
     Active Substance: REBAMIPIDE
     Indication: GASTROOESOPHAGEAL REFLUX DISEASE
     Dosage: 100 MG, TID
     Route: 048
     Dates: start: 20170209
  19. SEPTRIN [Concomitant]
     Active Substance: SULFAMETHOXAZOLE\TRIMETHOPRIM
     Dosage: 1 TABLET, BID
     Route: 048
     Dates: start: 20170324, end: 20170330
  20. EMEND (FOSAPREPITANT DIMEGLUMINE) [Suspect]
     Active Substance: FOSAPREPITANT DIMEGLUMINE
     Dosage: 150 MG, ONCE
     Route: 042
     Dates: start: 20170524, end: 20170524
  21. LASTET [Concomitant]
     Active Substance: ETOPOSIDE
     Dosage: 65 MG, ONCE  (CYCLE 2); STRENGTH: 100MG/5ML
     Route: 042
     Dates: start: 20170303, end: 20170303
  22. METHYLPREDNISOLONE SODIUM SUCCINATE. [Concomitant]
     Active Substance: METHYLPREDNISOLONE SODIUM SUCCINATE
     Dosage: 500 MG, QD
     Route: 042
     Dates: start: 20170502, end: 20170506
  23. SEPTRIN [Concomitant]
     Active Substance: SULFAMETHOXAZOLE\TRIMETHOPRIM
     Indication: INFECTION PROPHYLAXIS
     Dosage: 1 TABLET, BID
     Route: 048
     Dates: start: 20170210, end: 20170216
  24. SEPTRIN [Concomitant]
     Active Substance: SULFAMETHOXAZOLE\TRIMETHOPRIM
     Dosage: 1 TABLET, BID
     Route: 048
     Dates: start: 20170524, end: 20170530
  25. CRAVIT [Concomitant]
     Active Substance: LEVOFLOXACIN
     Dosage: 500 MG, QD
     Route: 048
     Dates: start: 20170324, end: 20170402
  26. LASTET [Concomitant]
     Active Substance: ETOPOSIDE
     Indication: DIFFUSE LARGE B-CELL LYMPHOMA RECURRENT
     Dosage: 40 MG, ONCE (CYCLE 1); STRENGTH: 100MG/5ML
     Route: 042
     Dates: start: 20170210, end: 20170210
  27. CISPLAN [Concomitant]
     Active Substance: CISPLATIN
     Dosage: 40 MG, QD, CYCLE 3; STRENGTH: 50MG/100ML
     Route: 042
     Dates: start: 20170324, end: 20170327
  28. CISPLAN [Concomitant]
     Active Substance: CISPLATIN
     Dosage: 39.5 MG, QD CYCLE 5; STRENGTH: 50MG/100ML
     Route: 042
     Dates: start: 20170524, end: 20170527
  29. METHYLPREDNISOLONE SODIUM SUCCINATE. [Concomitant]
     Active Substance: METHYLPREDNISOLONE SODIUM SUCCINATE
     Indication: PROPHYLAXIS OF NAUSEA AND VOMITING
     Dosage: 500 MG, QD
     Route: 042
     Dates: start: 20170210, end: 20170214
  30. METHYLPREDNISOLONE SODIUM SUCCINATE. [Concomitant]
     Active Substance: METHYLPREDNISOLONE SODIUM SUCCINATE
     Dosage: 500 MG, QD
     Route: 042
     Dates: start: 20170303, end: 20170307
  31. ALOXI [Concomitant]
     Active Substance: PALONOSETRON HYDROCHLORIDE
     Dosage: 0.25 MG, ONCE
     Route: 042
     Dates: start: 20170303, end: 20170303
  32. NEXIUM [Concomitant]
     Active Substance: ESOMEPRAZOLE MAGNESIUM
     Indication: GASTRIC ULCER
     Dosage: 40 MG, QD
     Route: 048
     Dates: start: 20170209
  33. SEPTRIN [Concomitant]
     Active Substance: SULFAMETHOXAZOLE\TRIMETHOPRIM
     Dosage: 1 TABLET, BID
     Route: 048
     Dates: start: 20170303, end: 20170309
  34. SEPTRIN [Concomitant]
     Active Substance: SULFAMETHOXAZOLE\TRIMETHOPRIM
     Dosage: 1 TABLET, BID
     Route: 048
     Dates: start: 20170502, end: 20170508
  35. CRAVIT [Concomitant]
     Active Substance: LEVOFLOXACIN
     Dosage: 500 MG, QD
     Route: 048
     Dates: start: 20170303, end: 20170312
  36. CRAVIT [Concomitant]
     Active Substance: LEVOFLOXACIN
     Dosage: 500 MG, QD
     Route: 048
     Dates: start: 20170502, end: 20170511
  37. METHYLPREDNISOLONE SODIUM SUCCINATE. [Concomitant]
     Active Substance: METHYLPREDNISOLONE SODIUM SUCCINATE
     Dosage: 500 MG, QD
     Route: 042
     Dates: start: 20170524, end: 20170528
  38. ALOXI [Concomitant]
     Active Substance: PALONOSETRON HYDROCHLORIDE
     Indication: PROPHYLAXIS OF NAUSEA AND VOMITING
     Dosage: 0.25 MG, ONCE
     Route: 042
     Dates: start: 20170210, end: 20170210
  39. NEXIUM [Concomitant]
     Active Substance: ESOMEPRAZOLE MAGNESIUM
     Indication: HELICOBACTER INFECTION
  40. EMEND (FOSAPREPITANT DIMEGLUMINE) [Suspect]
     Active Substance: FOSAPREPITANT DIMEGLUMINE
     Indication: PROPHYLAXIS OF NAUSEA AND VOMITING
     Dosage: 150 MG, ONCE
     Route: 042
     Dates: start: 20170210, end: 20170210
  41. EMEND (FOSAPREPITANT DIMEGLUMINE) [Suspect]
     Active Substance: FOSAPREPITANT DIMEGLUMINE
     Dosage: 150 MG, ONCE
     Route: 042
     Dates: start: 20170324, end: 20170324

REACTIONS (16)
  - Constipation [Recovered/Resolved]
  - Diarrhoea [Recovered/Resolved]
  - Platelet count decreased [Recovered/Resolved]
  - Hypertension [Recovering/Resolving]
  - Platelet count decreased [Recovered/Resolved]
  - Nausea [Recovered/Resolved]
  - Platelet count decreased [Recovered/Resolved]
  - Neutrophil count decreased [Recovered/Resolved]
  - Headache [Recovered/Resolved]
  - Neutrophil count decreased [Recovered/Resolved]
  - Pyrexia [Recovered/Resolved]
  - Asthenia [Recovering/Resolving]
  - Femoral neck fracture [Recovered/Resolved]
  - Anaemia [Recovering/Resolving]
  - Hypokalaemia [Recovered/Resolved]
  - Nausea [Recovered/Resolved]

NARRATIVE: CASE EVENT DATE: 20170213
